FAERS Safety Report 7916761-0 (Version None)
Quarter: 2011Q4

REPORT INFORMATION
  Report Type: 
  Country: None (occurrence: None)
  Receive Date: 20111114
  Receipt Date: 20111102
  Transmission Date: 20120403
  Serious: Yes (Other)
  Sender: FDA-Public Use
  Company Number: TPA2011A06808

PATIENT
  Age: 52 Year
  Sex: Male
  Weight: 117.9352 kg

DRUGS (1)
  1. ACTOPLUS MET [Suspect]
     Indication: INSULIN RESISTANCE
     Dosage: 1 IN 1 D, 15/850 MG, PER ORAL
     Route: 048
     Dates: end: 20111014

REACTIONS (1)
  - BLADDER CANCER [None]
